FAERS Safety Report 17273600 (Version 8)
Quarter: 2021Q3

REPORT INFORMATION
  Report Type: Spontaneous
  Country: US (occurrence: US)
  Receive Date: 20200115
  Receipt Date: 20210901
  Transmission Date: 20211014
  Serious: Yes (Other)
  Sender: FDA-Public Use
  Company Number: US-PFIZER INC-2020017545

PATIENT
  Age: 56 Year
  Sex: Female
  Weight: 91.63 kg

DRUGS (7)
  1. CYMBALTA [Concomitant]
     Active Substance: DULOXETINE HYDROCHLORIDE
     Indication: DEPRESSION
     Dosage: UNK
  2. BENADRYL [Concomitant]
     Active Substance: DIPHENHYDRAMINE HYDROCHLORIDE
     Dosage: UNK, 4X/DAY [EVERY 6 HOURS]
  3. XELJANZ XR [Suspect]
     Active Substance: TOFACITINIB CITRATE
     Indication: RHEUMATOID ARTHRITIS
     Dosage: 11 MG, 1X/DAY
     Route: 048
     Dates: start: 20190909
  4. LIPITOR [Concomitant]
     Active Substance: ATORVASTATIN CALCIUM
     Dosage: UNK (INCREASE IN LIPITOR TO 40 MG)
  5. METFORMIN [Concomitant]
     Active Substance: METFORMIN HYDROCHLORIDE
     Dosage: 1000 MG, DAILY (INCREASE IN METFORMIN TO 1000 MG PER DAY)
  6. VASCEPA [Concomitant]
     Active Substance: ICOSAPENT ETHYL
     Dosage: UNK
  7. XELJANZ XR [Suspect]
     Active Substance: TOFACITINIB CITRATE
     Dosage: 11 MG, DAILY
     Route: 048
     Dates: start: 20190919

REACTIONS (28)
  - Arthralgia [Unknown]
  - Mental fatigue [Unknown]
  - Peripheral swelling [Unknown]
  - Migraine [Unknown]
  - Anaemia [Not Recovered/Not Resolved]
  - Joint destruction [Unknown]
  - Dry mouth [Not Recovered/Not Resolved]
  - Blood cholesterol increased [Unknown]
  - Headache [Unknown]
  - Lacrimation increased [Unknown]
  - Blood triglycerides abnormal [Unknown]
  - Throat tightness [Unknown]
  - Swelling face [Unknown]
  - Dizziness [Not Recovered/Not Resolved]
  - Blood glucose increased [Recovering/Resolving]
  - Diabetes mellitus [Not Recovered/Not Resolved]
  - Feeling abnormal [Unknown]
  - Cyst [Unknown]
  - Nausea [Unknown]
  - Hypotension [Unknown]
  - Fatigue [Not Recovered/Not Resolved]
  - Sinusitis [Unknown]
  - Blood glucose decreased [Unknown]
  - Vertigo [Unknown]
  - Musculoskeletal stiffness [Recovering/Resolving]
  - Pain [Recovering/Resolving]
  - Illness [Unknown]
  - Blood pressure increased [Recovering/Resolving]

NARRATIVE: CASE EVENT DATE: 2019
